FAERS Safety Report 17826917 (Version 1)
Quarter: 2020Q2

REPORT INFORMATION
  Report Type: Spontaneous
  Country: GB (occurrence: GB)
  Receive Date: 20200526
  Receipt Date: 20200526
  Transmission Date: 20200714
  Serious: Yes (Other)
  Sender: FDA-Public Use
  Company Number: NVSC2020GB139840

PATIENT
  Sex: Male

DRUGS (24)
  1. SULFASALAZINE. [Suspect]
     Active Substance: SULFASALAZINE
     Dosage: 2 G, QD
     Route: 065
     Dates: start: 201811, end: 201812
  2. TOCILIZUMAB. [Concomitant]
     Active Substance: TOCILIZUMAB
     Indication: PRODUCT USED FOR UNKNOWN INDICATION
     Dosage: 162 MG, QW
     Route: 058
     Dates: start: 201804, end: 201807
  3. COSENTYX [Suspect]
     Active Substance: SECUKINUMAB
     Indication: PRODUCT USED FOR UNKNOWN INDICATION
     Dosage: 300 MG
     Route: 048
     Dates: start: 201707, end: 2017
  4. METHOTREXATE. [Suspect]
     Active Substance: METHOTREXATE
     Dosage: 15 MG
     Route: 048
     Dates: start: 201911, end: 201901
  5. SULFASALAZINE. [Suspect]
     Active Substance: SULFASALAZINE
     Dosage: UNK
     Route: 065
     Dates: start: 201611, end: 201701
  6. HUMIRA [Suspect]
     Active Substance: ADALIMUMAB
     Dosage: 1 OT, TIW
     Route: 058
     Dates: start: 2013, end: 201401
  7. HUMIRA [Suspect]
     Active Substance: ADALIMUMAB
     Dosage: UNK
     Route: 058
     Dates: start: 201702, end: 201707
  8. LEFLUNOMIDE. [Concomitant]
     Active Substance: LEFLUNOMIDE
     Indication: PRODUCT USED FOR UNKNOWN INDICATION
     Dosage: 20 MG
     Route: 065
     Dates: end: 201403
  9. METHOTREXATE. [Suspect]
     Active Substance: METHOTREXATE
     Dosage: 25 MG
     Route: 048
     Dates: start: 201810, end: 201905
  10. ABATACEPT [Concomitant]
     Active Substance: ABATACEPT
     Indication: PRODUCT USED FOR UNKNOWN INDICATION
     Dosage: 125 MG,
     Route: 058
     Dates: start: 201807, end: 201807
  11. METHOTREXATE. [Suspect]
     Active Substance: METHOTREXATE
     Indication: PRODUCT USED FOR UNKNOWN INDICATION
     Dosage: 10 MG, (10 MG TO 15 MG)
     Route: 048
     Dates: start: 201804, end: 2018
  12. HYDROXYCHLOROQUINE [Suspect]
     Active Substance: HYDROXYCHLOROQUINE
     Indication: PRODUCT USED FOR UNKNOWN INDICATION
     Dosage: UNK
     Route: 065
  13. HUMIRA [Suspect]
     Active Substance: ADALIMUMAB
     Dosage: 1 UNK, Q4W
     Route: 058
     Dates: start: 201401, end: 201403
  14. COSENTYX [Suspect]
     Active Substance: SECUKINUMAB
     Dosage: 40 MG
     Route: 048
     Dates: start: 201707, end: 2018
  15. SULFASALAZINE. [Suspect]
     Active Substance: SULFASALAZINE
     Dosage: 3 G, QD
     Route: 065
     Dates: start: 201901, end: 201902
  16. HYDROXYCHLOROQUINE [Suspect]
     Active Substance: HYDROXYCHLOROQUINE
     Dosage: 400 MG
     Route: 065
     Dates: start: 201712, end: 201802
  17. HUMIRA [Suspect]
     Active Substance: ADALIMUMAB
     Indication: PSORIATIC ARTHROPATHY
     Dosage: UNK
     Route: 058
     Dates: start: 200911, end: 2013
  18. LEFLUNOMIDE. [Concomitant]
     Active Substance: LEFLUNOMIDE
     Dosage: 20 MG,
     Route: 065
     Dates: start: 2016, end: 201803
  19. METHOTREXATE. [Suspect]
     Active Substance: METHOTREXATE
     Dosage: UNK
     Route: 048
     Dates: start: 201810, end: 201901
  20. LEFLUNOMIDE. [Concomitant]
     Active Substance: LEFLUNOMIDE
     Dosage: 10 MG,
     Route: 065
     Dates: start: 201403, end: 2016
  21. METHOTREXATE. [Suspect]
     Active Substance: METHOTREXATE
     Dosage: 20 MG
     Route: 048
     Dates: start: 201807, end: 201810
  22. METHOTREXATE. [Suspect]
     Active Substance: METHOTREXATE
     Dosage: 30 MG
     Route: 048
     Dates: start: 201905, end: 201911
  23. SULFASALAZINE. [Suspect]
     Active Substance: SULFASALAZINE
     Indication: PRODUCT USED FOR UNKNOWN INDICATION
     Dosage: 2 G, QD
     Route: 065
     Dates: end: 201107
  24. SULFASALAZINE. [Suspect]
     Active Substance: SULFASALAZINE
     Dosage: 4 G, QD
     Route: 065
     Dates: start: 201812, end: 201901

REACTIONS (15)
  - Psoriatic arthropathy [Unknown]
  - Rash [Unknown]
  - Joint swelling [Recovering/Resolving]
  - Joint swelling [Unknown]
  - Emphysema [Unknown]
  - Paraesthesia [Unknown]
  - Joint injury [Unknown]
  - Hypoaesthesia [Unknown]
  - Therapeutic product effect incomplete [Unknown]
  - Nausea [Unknown]
  - Drug ineffective [Unknown]
  - Dry skin [Unknown]
  - Rheumatoid nodule [Recovering/Resolving]
  - Cough [Not Recovered/Not Resolved]
  - Dactylitis [Unknown]

NARRATIVE: CASE EVENT DATE: 2009
